FAERS Safety Report 5115863-4 (Version None)
Quarter: 2006Q3

REPORT INFORMATION
  Report Type: 
  Country: None (occurrence: None)
  Receive Date: 20060927
  Receipt Date: 20060426
  Transmission Date: 20061208
  Serious: Yes (Other)
  Sender: FDA-Public Use
  Company Number: PHBS2006JP06309

PATIENT
  Age: 73 Year
  Sex: Female

DRUGS (2)
  1. CYCLOSPORINE [Suspect]
     Indication: NEPHROTIC SYNDROME
     Dosage: 70 MG/DAY
     Route: 065
  2. PREDNISOLONE [Suspect]
     Indication: NEPHROTIC SYNDROME
     Dosage: 40 MG/D

REACTIONS (5)
  - BLOOD BETA-D-GLUCAN INCREASED [None]
  - C-REACTIVE PROTEIN INCREASED [None]
  - CANDIDIASIS [None]
  - DIABETES MELLITUS [None]
  - STOMATITIS [None]
